FAERS Safety Report 14499083 (Version 1)
Quarter: 2018Q1

REPORT INFORMATION
  Report Type: Spontaneous
  Country: DE (occurrence: DE)
  Receive Date: 20180207
  Receipt Date: 20180207
  Transmission Date: 20180509
  Serious: Yes (Hospitalization, Other)
  Sender: FDA-Public Use
  Company Number: PHHY2015DE177571

PATIENT
  Age: 75 Year
  Sex: Male
  Weight: 68 kg

DRUGS (9)
  1. CARBOPLATIN. [Suspect]
     Active Substance: CARBOPLATIN
     Indication: COLON CANCER
     Dosage: 1 OT, QW (AUC 5)
     Route: 042
     Dates: start: 20150318, end: 20150318
  2. AVASTIN [Suspect]
     Active Substance: BEVACIZUMAB
     Indication: COLON CANCER
     Dosage: 7.5 MG/KG, QW
     Route: 042
     Dates: start: 20150318, end: 20150617
  3. ZOLEDRONIC ACID [Concomitant]
     Active Substance: ZOLEDRONIC ACID
     Indication: PRODUCT USED FOR UNKNOWN INDICATION
     Dosage: 4 MG, QW
     Route: 042
     Dates: start: 20150310, end: 20150625
  4. NOVAMINSULFON [Concomitant]
     Active Substance: METAMIZOLE
     Indication: PAIN
     Dosage: 500 MG, UNK
     Route: 048
  5. PEMETREXED. [Suspect]
     Active Substance: PEMETREXED
     Indication: COLON CANCER
     Dosage: 710 MG, QW
     Route: 042
     Dates: start: 20150318, end: 20150617
  6. FOLSAN [Concomitant]
     Active Substance: FOLIC ACID
     Indication: PRODUCT USED FOR UNKNOWN INDICATION
     Dosage: 0.4 MG, UNK
     Route: 048
  7. IBUFLAM [Concomitant]
     Active Substance: IBUPROFEN
     Indication: PAIN
     Dosage: 600 MG, UNK
     Route: 048
  8. VITAMIN B12 [Concomitant]
     Active Substance: CYANOCOBALAMIN
     Indication: VITAMIN B12 DEFICIENCY
     Dosage: 1 MG, QW
     Route: 058
  9. DEXAMETHASONE. [Concomitant]
     Active Substance: DEXAMETHASONE
     Indication: PRODUCT USED FOR UNKNOWN INDICATION
     Dosage: 1 OT, QW (28 MG PER CYCLE)
     Route: 042
     Dates: start: 20150525, end: 20150618

REACTIONS (2)
  - Sepsis [Not Recovered/Not Resolved]
  - Neutropenia [Recovered/Resolved]

NARRATIVE: CASE EVENT DATE: 20150424
